FAERS Safety Report 15864426 (Version 1)
Quarter: 2019Q1

REPORT INFORMATION
  Report Type: Spontaneous
  Country: US (occurrence: US)
  Receive Date: 20190124
  Receipt Date: 20190124
  Transmission Date: 20190417
  Serious: No
  Sender: FDA-Public Use
  Company Number: US-TEIKOKU PHARMA USA-TPU2018-00881

PATIENT
  Sex: Female

DRUGS (1)
  1. LIDODERM [Suspect]
     Active Substance: LIDOCAINE
     Indication: SPINAL OPERATION

REACTIONS (2)
  - Malaise [Unknown]
  - Nerve injury [Not Recovered/Not Resolved]
